FAERS Safety Report 4476458-9 (Version None)
Quarter: 2004Q4

REPORT INFORMATION
  Report Type: 
  Country: None (occurrence: None)
  Receive Date: 20041012
  Receipt Date: 20040929
  Transmission Date: 20050328
  Serious: Yes (Death)
  Sender: FDA-Public Use
  Company Number: 04H-163-0276527-00

PATIENT
  Sex: Female

DRUGS (2)
  1. DEMEROL (MEPERIDINE HYDROCHLORIDE INJECTION) (MEPERIDINE HYDROCHLORIDE [Suspect]
     Dates: start: 20040601, end: 20040601
  2. STERILE SALINE BAG 100 ML [Suspect]
     Dates: start: 20040601, end: 20040601

REACTIONS (1)
  - COMA [None]
